FAERS Safety Report 23148826 (Version 1)
Quarter: 2023Q4

REPORT INFORMATION
  Report Type: Other
  Country: PE (occurrence: None)
  Receive Date: 20231106
  Receipt Date: 20231106
  Transmission Date: 20240109
  Serious: Yes (Other)
  Sender: FDA-Public Use
  Company Number: PE-ROCHE-3444735

PATIENT
  Age: 47 Year
  Sex: Female

DRUGS (4)
  1. ACTEMRA [Suspect]
     Active Substance: TOCILIZUMAB
     Indication: Rheumatoid arthritis
     Route: 058
     Dates: start: 202309
  2. LEFLUNOMIDE [Concomitant]
     Active Substance: LEFLUNOMIDE
     Dosage: ONE TABLET VIA ORAL ROUTE DURING 30 DAYS, EVERY 24 HOURS
     Route: 048
  3. PREDNISONE [Concomitant]
     Active Substance: PREDNISONE
     Dosage: ONE TABLET VIA ORAL ROUTE DURING 20 DAYS, EVERY 12 HOURS (AT 8 AM AND 6 PM)
     Route: 048
  4. OMEPRAZOLE [Concomitant]
     Active Substance: OMEPRAZOLE
     Dosage: ONE CAPSULE VIA ORAL ROUTE DURING 30 DAYS, EVERY 24 HOURS
     Route: 048

REACTIONS (5)
  - Pancreatic disorder [Unknown]
  - Hypothyroidism [Unknown]
  - Hepatic fibrosis [Unknown]
  - Cystitis [Unknown]
  - Headache [Unknown]
